FAERS Safety Report 8550147-3 (Version None)
Quarter: 2012Q3

REPORT INFORMATION
  Report Type: 
  Country: None (occurrence: None)
  Receive Date: 20120730
  Receipt Date: 20120719
  Transmission Date: 20120928
  Serious: Yes (Other)
  Sender: FDA-Public Use
  Company Number: US-ASTRAZENECA-2012SE50920

PATIENT

DRUGS (3)
  1. SEROQUEL [Suspect]
     Route: 048
  2. CELEXA [Suspect]
     Route: 065
  3. ZYVOX [Suspect]
     Route: 065

REACTIONS (1)
  - SEROTONIN SYNDROME [None]
